FAERS Safety Report 24097143 (Version 1)
Quarter: 2024Q3

REPORT INFORMATION
  Report Type: Spontaneous
  Country: US (occurrence: US)
  Receive Date: 20240716
  Receipt Date: 20240716
  Transmission Date: 20241016
  Serious: Yes (Other)
  Sender: PFIZER
  Company Number: US-PFIZER INC-PV202400091704

PATIENT

DRUGS (1)
  1. HYDROCORTISONE SODIUM SUCCINATE [Suspect]
     Active Substance: HYDROCORTISONE SODIUM SUCCINATE
     Dosage: 50 MG (1 ML), AN INJECTION INTO THE RIGHT INFERIOR TURBINATE

REACTIONS (6)
  - Blindness unilateral [Recovering/Resolving]
  - Stomatitis necrotising [Unknown]
  - Vasospasm [Unknown]
  - Retinal artery spasm [Unknown]
  - Facial pain [Unknown]
  - Flushing [Unknown]
